FAERS Safety Report 5003680-5 (Version None)
Quarter: 2006Q2

REPORT INFORMATION
  Report Type: 
  Country: None (occurrence: None)
  Receive Date: 20060516
  Receipt Date: 20051004
  Transmission Date: 20061013
  Serious: Yes (Death, Hospitalization)
  Sender: FDA-Public Use
  Company Number: US-MERCK-0510USA03572

PATIENT
  Age: 52 Year
  Sex: Female
  Weight: 82 kg

DRUGS (7)
  1. VIOXX [Suspect]
     Indication: OSTEOARTHRITIS
     Route: 048
     Dates: start: 20000101, end: 20020101
  2. METFORMIN HYDROCHLORIDE [Concomitant]
     Route: 065
  3. AMARYL [Concomitant]
     Route: 065
  4. UNIVASC [Concomitant]
     Route: 065
  5. EVISTA [Concomitant]
     Route: 065
  6. SEREVENT [Concomitant]
     Route: 065
  7. FLOVENT [Concomitant]
     Route: 065

REACTIONS (2)
  - MYOCARDIAL INFARCTION [None]
  - NECK DEFORMITY [None]
